FAERS Safety Report 8941183 (Version 8)
Quarter: 2013Q1

REPORT INFORMATION
  Report Type: Spontaneous
  Country: US (occurrence: US)
  Receive Date: 20121203
  Receipt Date: 20130131
  Transmission Date: 20140127
  Serious: Yes (Hospitalization)
  Sender: FDA-Public Use
  Company Number: US-PFIZER INC-2012300469

PATIENT
  Age: 54 Year
  Sex: Female

DRUGS (2)
  1. PROTONIX [Suspect]
     Dosage: 40 MG, 2X/DAY
  2. PREMARIN [Concomitant]
     Indication: HYSTERECTOMY
     Dosage: UNK

REACTIONS (8)
  - Abdominal distension [Unknown]
  - Flatulence [Unknown]
  - Eating disorder [Unknown]
  - Ear disorder [Unknown]
  - Gastrooesophageal reflux disease [Unknown]
  - Swelling [Unknown]
  - Pain in extremity [Unknown]
  - Fluid intake reduced [Unknown]
